FAERS Safety Report 6881479-2 (Version None)
Quarter: 2010Q3

REPORT INFORMATION
  Report Type: 
  Country: None (occurrence: None)
  Receive Date: 20100729
  Receipt Date: 20100723
  Transmission Date: 20110219
  Serious: Yes (Other)
  Sender: FDA-Public Use
  Company Number: US-ASTRAZENECA-2009UW17738

PATIENT
  Age: 50 Year
  Sex: Male
  Weight: 113.4 kg

DRUGS (6)
  1. SEROQUEL [Suspect]
     Indication: POST-TRAUMATIC STRESS DISORDER
     Dosage: 200-800 MG
     Route: 048
     Dates: start: 20060101
  2. SEROQUEL [Suspect]
     Route: 048
     Dates: start: 20070101
  3. RISPERDAL [Concomitant]
     Indication: POST-TRAUMATIC STRESS DISORDER
     Route: 048
     Dates: start: 20060101, end: 20071012
  4. CITALOPRAM HYDROBROMIDE [Concomitant]
     Route: 048
     Dates: start: 20071012
  5. ALPRAZOLAM [Concomitant]
  6. TRAZODONE [Concomitant]
     Route: 048
     Dates: start: 20071012

REACTIONS (10)
  - BLOOD CHOLESTEROL INCREASED [None]
  - ERECTILE DYSFUNCTION [None]
  - HYPERLIPIDAEMIA [None]
  - INTERVERTEBRAL DISC DEGENERATION [None]
  - LUMBAR RADICULOPATHY [None]
  - NEUROPATHY PERIPHERAL [None]
  - OBESITY [None]
  - SPINAL COLUMN STENOSIS [None]
  - TYPE 2 DIABETES MELLITUS [None]
  - WEIGHT INCREASED [None]
